FAERS Safety Report 13559630 (Version 2)
Quarter: 2017Q2

REPORT INFORMATION
  Report Type: Spontaneous
  Country: CH (occurrence: CH)
  Receive Date: 20170518
  Receipt Date: 20170530
  Transmission Date: 20170830
  Serious: Yes (Life-Threatening, Hospitalization)
  Sender: FDA-Public Use
  Company Number: CH-ROCHE-1936130

PATIENT
  Age: 50 Year
  Sex: Female
  Weight: 74.5 kg

DRUGS (7)
  1. ACTEMRA [Suspect]
     Active Substance: TOCILIZUMAB
     Indication: RHEUMATOID ARTHRITIS
     Route: 042
     Dates: start: 20160329, end: 201606
  2. ACTEMRA [Suspect]
     Active Substance: TOCILIZUMAB
     Route: 042
     Dates: start: 201612, end: 20170508
  3. METHOTREXATE. [Suspect]
     Active Substance: METHOTREXATE
     Indication: RHEUMATOID ARTHRITIS
     Route: 048
     Dates: start: 20120117, end: 20170508
  4. SPIRICORT [Concomitant]
     Active Substance: PREDNISOLONE
     Route: 065
     Dates: start: 20150629, end: 20170118
  5. METOFOL (SWITZERLAND) [Suspect]
     Active Substance: FOLIC ACID
     Indication: PRODUCT USED FOR UNKNOWN INDICATION
     Route: 048
     Dates: start: 20120117
  6. SPIRICORT [Concomitant]
     Active Substance: PREDNISOLONE
     Indication: RHEUMATOID ARTHRITIS
     Route: 065
     Dates: start: 20120117, end: 201309
  7. ACTEMRA [Suspect]
     Active Substance: TOCILIZUMAB
     Route: 042
     Dates: start: 201606, end: 201612

REACTIONS (3)
  - Squamous cell carcinoma of the cervix [Not Recovered/Not Resolved]
  - Vaginal haemorrhage [Recovered/Resolved]
  - Haemorrhagic anaemia [None]

NARRATIVE: CASE EVENT DATE: 20170508
